FAERS Safety Report 21667468 (Version 1)
Quarter: 2022Q4

REPORT INFORMATION
  Report Type: Spontaneous
  Country: PK (occurrence: PK)
  Receive Date: 20221201
  Receipt Date: 20221201
  Transmission Date: 20230113
  Serious: Yes (Hospitalization, Other)
  Sender: FDA-Public Use
  Company Number: CLT-PK-2022-0035-313755

PATIENT
  Age: 52 Year
  Sex: Male

DRUGS (4)
  1. LINEZOLID [Suspect]
     Active Substance: LINEZOLID
     Indication: Burn infection
  2. CEFTRIAXONE [Concomitant]
     Active Substance: CEFTRIAXONE
     Route: 050
  3. VITAMINS [Concomitant]
     Active Substance: VITAMINS
  4. LAVENDER OIL [Concomitant]
     Active Substance: LAVENDER OIL

REACTIONS (3)
  - Psychotic disorder [Recovered/Resolved]
  - Hallucination [Recovered/Resolved]
  - Drug level increased [Recovered/Resolved]
